FAERS Safety Report 6295172-0 (Version None)
Quarter: 2009Q3

REPORT INFORMATION
  Report Type: 
  Country: None (occurrence: None)
  Receive Date: 20090803
  Receipt Date: 20090722
  Transmission Date: 20100115
  Serious: Yes (Hospitalization)
  Sender: FDA-Public Use
  Company Number: GB-ROCHE-645650

PATIENT
  Age: 18 Year
  Sex: Female

DRUGS (2)
  1. TAMIFLU [Suspect]
     Indication: INFLUENZA
     Route: 065
     Dates: start: 20090703, end: 20090706
  2. TAMIFLU [Suspect]
     Route: 065
     Dates: start: 20090707

REACTIONS (1)
  - GENERAL PHYSICAL HEALTH DETERIORATION [None]
